FAERS Safety Report 10991674 (Version 1)
Quarter: 2015Q2

REPORT INFORMATION
  Report Type: Spontaneous
  Country: HR (occurrence: HR)
  Receive Date: 20150406
  Receipt Date: 20150406
  Transmission Date: 20150821
  Serious: Yes (Other)
  Sender: FDA-Public Use
  Company Number: PHHY2015HR037277

PATIENT
  Age: 49 Year
  Sex: Male
  Weight: 102 kg

DRUGS (3)
  1. AMPRIL [Concomitant]
     Indication: ACUTE MYOCARDIAL INFARCTION
     Route: 048
     Dates: start: 20090408
  2. OSPAMOX [Suspect]
     Active Substance: AMOXICILLIN
     Indication: STATUS ASTHMATICUS
     Dosage: 1 G, BID
     Route: 048
     Dates: start: 20141220, end: 20141220
  3. CONCOR [Concomitant]
     Active Substance: BISOPROLOL FUMARATE
     Indication: ACUTE MYOCARDIAL INFARCTION
     Route: 048
     Dates: start: 20140408

REACTIONS (6)
  - Agitation [Recovering/Resolving]
  - Pruritus [Recovering/Resolving]
  - Feeling abnormal [Recovering/Resolving]
  - Erythema [Recovering/Resolving]
  - Rash [Recovering/Resolving]
  - Feeling hot [Recovering/Resolving]

NARRATIVE: CASE EVENT DATE: 20141220
